FAERS Safety Report 8601779-5 (Version None)
Quarter: 2012Q3

REPORT INFORMATION
  Report Type: 
  Country: None (occurrence: None)
  Receive Date: 20120817
  Receipt Date: 20120621
  Transmission Date: 20120928
  Serious: Yes (Other)
  Sender: FDA-Public Use
  Company Number: US-BRISTOL-MYERS SQUIBB COMPANY-16511446

PATIENT
  Age: 73 Year
  Sex: Male

DRUGS (1)
  1. SPRYCEL [Suspect]
     Dosage: JAN10 DOSE REDUCED TO 100MG 3DAYS A WEEK,INCREASED TO 100MG 5 TIMES A WEEK,APR11 100MG 6 DAYS A WEEK
     Dates: start: 20091101, end: 20120326

REACTIONS (4)
  - NEUTROPENIA [None]
  - PULMONARY HYPERTENSION [None]
  - ANAEMIA [None]
  - THROMBOCYTOPENIA [None]
